FAERS Safety Report 9057603 (Version 3)
Quarter: 2013Q1

REPORT INFORMATION
  Report Type: Spontaneous
  Country: US (occurrence: US)
  Receive Date: 20130204
  Receipt Date: 20130219
  Transmission Date: 20140127
  Serious: Yes (Other)
  Sender: FDA-Public Use
  Company Number: US-PFIZER INC-2013044836

PATIENT
  Age: 76 Year
  Sex: Female
  Weight: 45.35 kg

DRUGS (2)
  1. CHANTIX [Suspect]
     Indication: SMOKING CESSATION THERAPY
     Dosage: UNK
     Route: 048
  2. CHANTIX [Suspect]
     Dosage: UNK
     Route: 048

REACTIONS (2)
  - Drug dependence [Unknown]
  - Hypotension [Unknown]
